FAERS Safety Report 10973852 (Version 1)
Quarter: 2015Q1

REPORT INFORMATION
  Report Type: Spontaneous
  Country: US (occurrence: None)
  Receive Date: 20150331
  Receipt Date: 20150331
  Transmission Date: 20150721
  Serious: No
  Sender: FDA-Public Use
  Company Number: None

PATIENT
  Age: 1 Month
  Sex: Female
  Weight: 58.97 kg

DRUGS (1)
  1. HYDROCODONE BITARTRATE AND ACETAMINOPHEN [Suspect]
     Active Substance: ACETAMINOPHEN\HYDROCODONE BITARTRATE
     Indication: ANALGESIC THERAPY
     Dosage: 1 3-4 TIMES/DAILY AS NEEDED  TAKEN BY MOUTH
     Route: 048
     Dates: start: 20150303, end: 20150330

REACTIONS (1)
  - Product substitution issue [None]

NARRATIVE: CASE EVENT DATE: 20150306
